FAERS Safety Report 9159528 (Version 3)
Quarter: 2013Q2

REPORT INFORMATION
  Report Type: Spontaneous
  Country: CN (occurrence: None)
  Receive Date: 20130220
  Receipt Date: 20130614
  Transmission Date: 20140414
  Serious: Yes (Hospitalization)
  Sender: FDA-Public Use
  Company Number: JP-2013-10376

PATIENT
  Age: 70 Year
  Sex: Female

DRUGS (10)
  1. OPC-13013 [Suspect]
     Indication: CORONARY ARTERY DISEASE
     Route: 048
     Dates: start: 20111124, end: 20130201
  2. LORELCO (PROBUCOL) TABLET [Suspect]
     Indication: CORONARY ARTERY DISEASE
     Route: 048
     Dates: start: 20111124, end: 20130201
  3. BISOPROLOL FUMARATE (BISOPROLOL FUMARATE) UNKNOWN [Concomitant]
  4. ISOSORBIDE DINITRATE (ISOSORBIDE DINITRATE) UNKNOWN [Concomitant]
  5. ATORVASTATIN (ATORVASTATIN) UNKNOWN [Concomitant]
  6. ACARBOSE (ACARBOSE) UNKNOWN [Concomitant]
  7. NICERGOLOINE (NICERGOLINE) [Concomitant]
  8. QIANG LI DING XUAN PIAN (QIANG LI DING XUAN PIAN) [Concomitant]
  9. POTASSIUM CITRATE (CITRIC ACID, POTASSIUM CITRATE) [Concomitant]
  10. ASPIRIN (ACETYLSALICYLIC CID) [Concomitant]

REACTIONS (1)
  - Angina unstable [None]
